FAERS Safety Report 9193514 (Version 1)
Quarter: 2013Q1

REPORT INFORMATION
  Report Type: Spontaneous
  Country: US (occurrence: None)
  Receive Date: 20130325
  Receipt Date: 20130325
  Transmission Date: 20140127
  Serious: No
  Sender: FDA-Public Use
  Company Number: None

PATIENT
  Age: 31 Year
  Sex: Female
  Weight: 52.16 kg

DRUGS (1)
  1. PRISTIQ EXTENDED RELEASE [Suspect]
     Indication: DEPRESSION
     Route: 048
     Dates: start: 20091101, end: 20130316

REACTIONS (9)
  - Drug withdrawal syndrome [None]
  - Dizziness [None]
  - Nausea [None]
  - Disturbance in attention [None]
  - Paraesthesia [None]
  - Feeling abnormal [None]
  - Headache [None]
  - Photophobia [None]
  - Lethargy [None]
